FAERS Safety Report 5148250-3 (Version None)
Quarter: 2006Q4

REPORT INFORMATION
  Report Type: 
  Country: None (occurrence: None)
  Receive Date: 20061106
  Receipt Date: 20060822
  Transmission Date: 20070319
  Serious: Yes (Hospitalization)
  Sender: FDA-Public Use
  Company Number: 2006SP000092

PATIENT
  Age: 50 Year
  Sex: Female

DRUGS (3)
  1. POSACONAZOLE [Suspect]
     Indication: NEUTROPENIA
     Dosage: SEE IMAGE
     Route: 042
     Dates: start: 20060623, end: 20060706
  2. POSACONAZOLE [Suspect]
     Indication: NEUTROPENIA
     Dosage: SEE IMAGE
     Route: 042
     Dates: start: 20060707, end: 20060720
  3. . [Concomitant]

REACTIONS (2)
  - LUNG INFILTRATION [None]
  - RESPIRATORY FAILURE [None]
